FAERS Safety Report 9989681 (Version 1)
Quarter: 2014Q1

REPORT INFORMATION
  Report Type: Spontaneous
  Country: US (occurrence: None)
  Receive Date: 20140123
  Receipt Date: 20140123
  Transmission Date: 20141002
  Serious: Yes (Hospitalization)
  Sender: FDA-Public Use
  Company Number: UTC-038047

PATIENT
  Age: 22 Year
  Sex: Female
  Weight: 53.72 kg

DRUGS (5)
  1. REMODULIN [Suspect]
     Indication: COR PULMONALE CHRONIC
     Dosage: 597.6 UG/KG, 1 IN 1 MIN), SUBCUTANEOUS
     Route: 058
     Dates: start: 20130425
  2. TYVASO [Suspect]
     Indication: PRODUCT USED FOR UNKNOWN INDICATION
     Dosage: (4 IN 1 D) , INHALATION  ONGOING  THERAPY DATES
  3. ADCIRCA (TADALAFIL) [Concomitant]
  4. TRACLEER (BOSENTAN) [Concomitant]
  5. REVATION (SILDENAFIL CITRATE) [Concomitant]

REACTIONS (1)
  - Right ventricular failure [None]
